FAERS Safety Report 24463162 (Version 1)
Quarter: 2024Q4

REPORT INFORMATION
  Report Type: Report from Study
  Country: US (occurrence: US)
  Receive Date: 20241018
  Receipt Date: 20241018
  Transmission Date: 20250115
  Serious: No
  Sender: ROCHE
  Company Number: US-ROCHE-2779996

PATIENT
  Age: 60 Year
  Sex: Female
  Weight: 75.0 kg

DRUGS (9)
  1. XOLAIR [Suspect]
     Active Substance: OMALIZUMAB
     Indication: Asthma
     Route: 058
  2. XOLAIR [Suspect]
     Active Substance: OMALIZUMAB
     Route: 058
  3. XOLAIR [Suspect]
     Active Substance: OMALIZUMAB
     Route: 058
  4. ZYFLO [Concomitant]
     Active Substance: ZILEUTON
  5. FOLATE SODIUM [Concomitant]
     Active Substance: FOLATE SODIUM
  6. CLONAZEPAM [Concomitant]
     Active Substance: CLONAZEPAM
  7. SEROQUEL [Concomitant]
     Active Substance: QUETIAPINE FUMARATE
  8. LITHIUM [Concomitant]
     Active Substance: LITHIUM
  9. DUPIXENT [Concomitant]
     Active Substance: DUPILUMAB

REACTIONS (2)
  - Off label use [Unknown]
  - No adverse event [Unknown]
